FAERS Safety Report 9311920 (Version 1)
Quarter: 2013Q2

REPORT INFORMATION
  Report Type: Spontaneous
  Country: IT (occurrence: IT)
  Receive Date: 20130528
  Receipt Date: 20130528
  Transmission Date: 20140414
  Serious: Yes (Other)
  Sender: FDA-Public Use
  Company Number: IT-PFIZER INC-2013162594

PATIENT
  Age: 75 Year
  Sex: Female

DRUGS (6)
  1. LYRICA [Suspect]
     Indication: SPINOCEREBELLAR ATAXIA
     Dosage: 75 MG, 2X/DAY
  2. LYRICA [Suspect]
     Dosage: 75 MG, 1X/DAY
     Route: 048
     Dates: start: 20130508, end: 20130515
  3. CARVEDILOL [Concomitant]
  4. PERINDOPRIL [Concomitant]
  5. CARDIOASPIRIN [Concomitant]
  6. COVERLAM [Concomitant]

REACTIONS (4)
  - Off label use [Not Recovered/Not Resolved]
  - Blindness unilateral [Not Recovered/Not Resolved]
  - Arteriosclerosis [Not Recovered/Not Resolved]
  - Ocular vascular disorder [Not Recovered/Not Resolved]
